FAERS Safety Report 5195582-9 (Version None)
Quarter: 2007Q1

REPORT INFORMATION
  Report Type: 
  Country: None (occurrence: None)
  Receive Date: 20070102
  Receipt Date: 20061227
  Transmission Date: 20070707
  Serious: Yes (Other)
  Sender: FDA-Public Use
  Company Number: PHNU2006DE04273

PATIENT
  Sex: Female
  Weight: 81 kg

DRUGS (2)
  1. ZOMETA [Suspect]
     Indication: PLASMACYTOMA
     Dosage: 4 MG, QMO
     Route: 042
     Dates: start: 20040305, end: 20060401
  2. EPOETIN BETA [Concomitant]
     Indication: ANAEMIA
     Dosage: 1 DF/QMO
     Route: 042
     Dates: start: 20050301

REACTIONS (3)
  - IMPAIRED HEALING [None]
  - OSTEONECROSIS [None]
  - TOOTH EXTRACTION [None]
